FAERS Safety Report 7334682-1 (Version None)
Quarter: 2011Q1

REPORT INFORMATION
  Report Type: 
  Country: None (occurrence: None)
  Receive Date: 20110307
  Receipt Date: 20110224
  Transmission Date: 20110831
  Serious: Yes (Other)
  Sender: FDA-Public Use
  Company Number: CA-JNJFOC-20110300574

PATIENT
  Sex: Female
  Weight: 62 kg

DRUGS (2)
  1. REMICADE [Suspect]
     Indication: CROHN'S DISEASE
     Route: 042
  2. REMICADE [Suspect]
     Route: 042

REACTIONS (8)
  - TUNNEL VISION [None]
  - HEADACHE [None]
  - DYSARTHRIA [None]
  - CHEST DISCOMFORT [None]
  - SPEECH DISORDER [None]
  - INFUSION RELATED REACTION [None]
  - AURA [None]
  - FLUSHING [None]
